FAERS Safety Report 6836532-6 (Version None)
Quarter: 2010Q3

REPORT INFORMATION
  Report Type: 
  Country: None (occurrence: None)
  Receive Date: 20100713
  Receipt Date: 20100706
  Transmission Date: 20110219
  Serious: Yes (Hospitalization, Other)
  Sender: FDA-Public Use
  Company Number: AU-WYE-G06367810

PATIENT
  Sex: Male

DRUGS (1)
  1. PRISTIQ [Suspect]
     Indication: MAJOR DEPRESSION
     Dosage: 50MG DAILY
     Route: 048
     Dates: start: 20100301, end: 20100315

REACTIONS (3)
  - CONDITION AGGRAVATED [None]
  - SUICIDAL IDEATION [None]
  - SUICIDE ATTEMPT [None]
